FAERS Safety Report 15714720 (Version 13)
Quarter: 2022Q2

REPORT INFORMATION
  Report Type: Spontaneous
  Country: US (occurrence: US)
  Receive Date: 20181212
  Receipt Date: 20220629
  Transmission Date: 20220721
  Serious: Yes (Other)
  Sender: FDA-Public Use
  Company Number: US-ALLERGAN-1852207US

PATIENT
  Sex: Female

DRUGS (10)
  1. BOTOX COSMETIC [Suspect]
     Active Substance: ONABOTULINUMTOXINA
     Indication: Skin wrinkling
     Dosage: UNK, SINGLE
     Route: 030
     Dates: start: 201605, end: 201605
  2. BOTOX COSMETIC [Suspect]
     Active Substance: ONABOTULINUMTOXINA
     Indication: Skin wrinkling
     Dosage: UNK, SINGLE
     Route: 030
     Dates: start: 201605, end: 201605
  3. BOTOX COSMETIC [Suspect]
     Active Substance: ONABOTULINUMTOXINA
     Indication: Breast disorder female
     Dosage: UNK, SINGLE
     Route: 030
  4. BOTOX COSMETIC [Suspect]
     Active Substance: ONABOTULINUMTOXINA
     Indication: Face lift
     Dosage: UNK, SINGLE
     Route: 030
     Dates: start: 2008, end: 2008
  5. JUVEDERM VOLUMA XC [Suspect]
     Active Substance: HYALURONIC ACID\LIDOCAINE HYDROCHLORIDE
     Indication: Dermal filler injection
     Dosage: UNK UNK, SINGLE
     Route: 065
     Dates: start: 2018, end: 2018
  6. JUVEDERM [Concomitant]
     Active Substance: HYALURONIC ACID
     Dosage: UNK
     Route: 065
     Dates: start: 201804, end: 201804
  7. JUVEDERM [Concomitant]
     Active Substance: HYALURONIC ACID
     Indication: Skin wrinkling
     Dosage: UNK
     Route: 065
     Dates: start: 2000
  8. UNSPECIFIED INGREDIENT [Concomitant]
     Active Substance: UNSPECIFIED INGREDIENT
     Indication: Hypothyroidism
     Route: 065
  9. VITAMIN D NOS [Concomitant]
     Active Substance: VITAMIN D NOS
     Route: 065
  10. ADDERALL [Concomitant]
     Active Substance: AMPHETAMINE ASPARTATE\AMPHETAMINE SULFATE\DEXTROAMPHETAMINE SACCHARATE\DEXTROAMPHETAMINE SULFATE
     Indication: Attention deficit hyperactivity disorder
     Route: 065

REACTIONS (49)
  - Breast cancer [Recovered/Resolved]
  - Meningitis [Unknown]
  - Neoplasm [Unknown]
  - Eyelid infection [Not Recovered/Not Resolved]
  - Visual impairment [Unknown]
  - Eyelid erosion [Not Recovered/Not Resolved]
  - Staphylococcal infection [Not Recovered/Not Resolved]
  - Blindness unilateral [Not Recovered/Not Resolved]
  - Deafness [Not Recovered/Not Resolved]
  - Skin cancer [Not Recovered/Not Resolved]
  - Deep vein thrombosis [Not Recovered/Not Resolved]
  - Cervix neoplasm [Not Recovered/Not Resolved]
  - Breast disorder [Recovered/Resolved]
  - Nerve injury [Not Recovered/Not Resolved]
  - Eyelid exfoliation [Unknown]
  - Fear of death [Not Recovered/Not Resolved]
  - Cellulitis [Not Recovered/Not Resolved]
  - Neurodermatitis [Not Recovered/Not Resolved]
  - Condition aggravated [Not Recovered/Not Resolved]
  - Off label use [Unknown]
  - Expired product administered [Unknown]
  - Poor quality product administered [Unknown]
  - Back disorder [Unknown]
  - Swelling of eyelid [Not Recovered/Not Resolved]
  - Skin laceration [Unknown]
  - Wrong technique in product usage process [Unknown]
  - Swelling face [Unknown]
  - Aphthous ulcer [Recovering/Resolving]
  - Product storage error [Unknown]
  - Stress [Unknown]
  - Housebound [Not Recovered/Not Resolved]
  - Eyelid operation [Unknown]
  - Skin atrophy [Unknown]
  - Autoimmune disorder [Not Recovered/Not Resolved]
  - Skin exfoliation [Not Recovered/Not Resolved]
  - Vertigo [Not Recovered/Not Resolved]
  - Sickle cell anaemia [Not Recovered/Not Resolved]
  - Blood cholesterol increased [Not Recovered/Not Resolved]
  - Impetigo [Not Recovered/Not Resolved]
  - Skin disorder [Not Recovered/Not Resolved]
  - Blepharitis [Not Recovered/Not Resolved]
  - Pantoea agglomerans infection [Not Recovered/Not Resolved]
  - Brain injury [Unknown]
  - Suspected product contamination [Unknown]
  - Injection site pustule [Not Recovered/Not Resolved]
  - Therapeutic product ineffective for unapproved indication [Unknown]
  - Product deposit [Unknown]
  - Therapeutic product effect decreased [Unknown]
  - Injection site oedema [Unknown]

NARRATIVE: CASE EVENT DATE: 20120101
